FAERS Safety Report 5511526-1 (Version None)
Quarter: 2007Q4

REPORT INFORMATION
  Report Type: 
  Country: None (occurrence: None)
  Receive Date: 20071109
  Receipt Date: 20071030
  Transmission Date: 20080405
  Serious: Yes (Death, Hospitalization)
  Sender: FDA-Public Use
  Company Number: B0494534A

PATIENT
  Age: 52 Year
  Sex: Female

DRUGS (7)
  1. ZOFRAN [Suspect]
     Route: 065
  2. TAXOTERE [Suspect]
     Dosage: 100MGM2 PER DAY
     Route: 042
     Dates: start: 20070921, end: 20070921
  3. NEULASTA [Suspect]
     Dosage: 1UNIT PER DAY
     Route: 058
     Dates: start: 20070922, end: 20070922
  4. SOLU-MEDROL [Suspect]
     Route: 042
  5. FLUOROURACIL [Concomitant]
     Route: 065
  6. EPIRUBICIN [Concomitant]
     Route: 065
  7. CYCLOPHOSPHAMIDE [Concomitant]
     Route: 065

REACTIONS (13)
  - BLOOD CREATINE PHOSPHOKINASE INCREASED [None]
  - BLOOD LACTATE DEHYDROGENASE INCREASED [None]
  - C-REACTIVE PROTEIN INCREASED [None]
  - GENERAL PHYSICAL HEALTH DETERIORATION [None]
  - HYPOTENSION [None]
  - MYALGIA [None]
  - OXYGEN SATURATION DECREASED [None]
  - PYREXIA [None]
  - RHABDOMYOLYSIS [None]
  - SKIN DISCOLOURATION [None]
  - TONGUE OEDEMA [None]
  - TOXIC SHOCK SYNDROME STAPHYLOCOCCAL [None]
  - TRANSAMINASES INCREASED [None]
